FAERS Safety Report 6714632-9 (Version None)
Quarter: 2010Q2

REPORT INFORMATION
  Report Type: 
  Country: None (occurrence: None)
  Receive Date: 20100507
  Receipt Date: 20100427
  Transmission Date: 20101027
  Serious: Yes (Hospitalization)
  Sender: FDA-Public Use
  Company Number: 2008BI002638

PATIENT
  Age: 32 Year
  Sex: Male
  Weight: 81 kg

DRUGS (1)
  1. AVONEX [Suspect]
     Indication: MULTIPLE SCLEROSIS
     Route: 030
     Dates: start: 20070321, end: 20091201

REACTIONS (10)
  - ASTHENIA [None]
  - DRUG INEFFECTIVE [None]
  - FEMUR FRACTURE [None]
  - GAIT DISTURBANCE [None]
  - INJECTION SITE MASS [None]
  - LOSS OF CONSCIOUSNESS [None]
  - MUSCULAR WEAKNESS [None]
  - RASH [None]
  - ROAD TRAFFIC ACCIDENT [None]
  - VISION BLURRED [None]
